FAERS Safety Report 7275326-7 (Version None)
Quarter: 2011Q1

REPORT INFORMATION
  Report Type: 
  Country: None (occurrence: None)
  Receive Date: 20110204
  Receipt Date: 20110203
  Transmission Date: 20110831
  Serious: Yes (Death)
  Sender: FDA-Public Use
  Company Number: PHHY2007US03714

PATIENT
  Sex: Female

DRUGS (1)
  1. EXJADE [Suspect]
     Indication: NON-HODGKIN'S LYMPHOMA
     Dosage: 125 MG, UNK
     Route: 048

REACTIONS (2)
  - DEATH [None]
  - HAEMATOCHEZIA [None]
